FAERS Safety Report 18273795 (Version 4)
Quarter: 2021Q1

REPORT INFORMATION
  Report Type: Spontaneous
  Country: US (occurrence: US)
  Receive Date: 20200916
  Receipt Date: 20210304
  Transmission Date: 20210419
  Serious: Yes (Other)
  Sender: FDA-Public Use
  Company Number: US-PFIZER INC-2019111753

PATIENT
  Age: 55 Year
  Sex: Male

DRUGS (2)
  1. LYRICA [Suspect]
     Active Substance: PREGABALIN
     Dosage: 150 MG, 1X/DAY, [CAPSULE 1 TO 3 HOURS BEFORE BEDTIME IN THE EVENING]
  2. LYRICA [Suspect]
     Active Substance: PREGABALIN
     Dosage: 50 MG, 4X/DAY (BEFORE BREAKFAST AFTER LUNCH AND DINNER AND AT BEDTIME)
     Route: 048

REACTIONS (2)
  - Pneumonia [Unknown]
  - Asthma [Unknown]
